FAERS Safety Report 16274169 (Version 5)
Quarter: 2025Q3

REPORT INFORMATION
  Report Type: Report from Study
  Country: EU (occurrence: EU)
  Receive Date: 20190504
  Receipt Date: 20250724
  Transmission Date: 20251021
  Serious: Yes (Other)
  Sender: AUROBINDO
  Company Number: EU-AUROBINDO-AUR-APL-2019-023953

PATIENT
  Age: 68 Year

DRUGS (1)
  1. RALOXIFENE [Suspect]
     Active Substance: RALOXIFENE
     Indication: Osteoporosis
     Route: 065

REACTIONS (4)
  - Lumbar vertebral fracture [Unknown]
  - Rebound effect [Unknown]
  - Thoracic vertebral fracture [Unknown]
  - Spinal fracture [Unknown]
